FAERS Safety Report 12890875 (Version 1)
Quarter: 2016Q4

REPORT INFORMATION
  Report Type: Spontaneous
  Country: US (occurrence: US)
  Receive Date: 20161025
  Receipt Date: 20161025
  Transmission Date: 20170207
  Serious: No
  Sender: FDA-Public Use
  Company Number: None

PATIENT
  Age: 63 Year
  Sex: Female

DRUGS (1)
  1. CAPECITABINE 500MG TEVA [Suspect]
     Active Substance: CAPECITABINE
     Indication: PENILE CANCER
     Dosage: 2000MG TWICE DAILY X 7 DAYS, OFF 7 DAYS ORAL
     Route: 048
     Dates: start: 20160915, end: 20160923

REACTIONS (3)
  - Muscular weakness [None]
  - Fatigue [None]
  - Dehydration [None]
